APPROVED DRUG PRODUCT: POSACONAZOLE
Active Ingredient: POSACONAZOLE
Strength: 300MG/16.7ML (18MG/ML)
Dosage Form/Route: SOLUTION;INTRAVENOUS
Application: A208768 | Product #001 | TE Code: AP
Applicant: PH HEALTH LTD
Approved: May 25, 2022 | RLD: No | RS: No | Type: RX